FAERS Safety Report 4578509-X (Version None)
Quarter: 2005Q1

REPORT INFORMATION
  Report Type: 
  Country: None (occurrence: None)
  Receive Date: 20050207
  Receipt Date: 20050207
  Transmission Date: 20050727
  Serious: Yes (Life-Threatening)
  Sender: FDA-Public Use
  Company Number: None

PATIENT
  Age: 28 Year
  Sex: Male
  Weight: 86.1834 kg

DRUGS (3)
  1. NEURONTIN [Suspect]
     Indication: MIGRAINE
     Dosage: 300MG   4 TIMES A DAY   ORAL
     Route: 048
     Dates: start: 20030615, end: 20041101
  2. NEURONTIN [Suspect]
     Indication: PAIN
     Dosage: 300MG   4 TIMES A DAY   ORAL
     Route: 048
     Dates: start: 20030615, end: 20041101
  3. ZOLOFT [Suspect]
     Indication: DEPRESSION
     Dosage: 100MG   2 TIMES A DAY   ORAL
     Route: 048
     Dates: start: 20031015, end: 20040901

REACTIONS (11)
  - ANHEDONIA [None]
  - CONFUSIONAL STATE [None]
  - CRYING [None]
  - DEPRESSION [None]
  - INTENTIONAL MISUSE [None]
  - MOOD SWINGS [None]
  - PERSONALITY CHANGE [None]
  - RELATIONSHIP BREAKDOWN [None]
  - SOCIAL AVOIDANT BEHAVIOUR [None]
  - SUICIDAL IDEATION [None]
  - THINKING ABNORMAL [None]
